FAERS Safety Report 4381278-X (Version None)
Quarter: 2004Q2

REPORT INFORMATION
  Report Type: 
  Country: None (occurrence: None)
  Receive Date: 20040616
  Receipt Date: 20040603
  Transmission Date: 20050107
  Serious: Yes (Other)
  Sender: FDA-Public Use
  Company Number: US-JNJFOC-20040601304

PATIENT
  Sex: Female

DRUGS (1)
  1. ULTRAM [Suspect]
     Dosage: ORAL
     Route: 048

REACTIONS (2)
  - EYE ROLLING [None]
  - NUCHAL RIGIDITY [None]
